FAERS Safety Report 10590378 (Version 4)
Quarter: 2015Q2

REPORT INFORMATION
  Report Type: Spontaneous
  Country: US (occurrence: US)
  Receive Date: 20141118
  Receipt Date: 20150602
  Transmission Date: 20150821
  Serious: Yes (Hospitalization, Other)
  Sender: FDA-Public Use
  Company Number: US-BAYER-2014-168329

PATIENT
  Age: 22 Year
  Sex: Female
  Weight: 47.62 kg

DRUGS (5)
  1. MIRENA [Suspect]
     Active Substance: LEVONORGESTREL
     Indication: CONTRACEPTION
     Dosage: 20 MCG/24HR, CONT
     Route: 015
     Dates: start: 20080825, end: 20120709
  2. IBUPROFEN. [Concomitant]
     Active Substance: IBUPROFEN
  3. IRON [FERROUS SULFATE] [Concomitant]
     Dosage: UNK
     Dates: start: 200806
  4. AZITHROMYCIN [Concomitant]
     Active Substance: AZITHROMYCIN ANHYDROUS
  5. ZOFRAN [Concomitant]
     Active Substance: ONDANSETRON HYDROCHLORIDE

REACTIONS (14)
  - Genital haemorrhage [None]
  - Pelvic pain [None]
  - Internal injury [None]
  - Anxiety [None]
  - Depressed mood [None]
  - Uterine perforation [None]
  - Abdominal pain [None]
  - Medical device discomfort [None]
  - Dysmenorrhoea [None]
  - Emotional distress [None]
  - Complication of pregnancy [None]
  - Depression [None]
  - Fear [None]
  - Injury [None]

NARRATIVE: CASE EVENT DATE: 201202
